FAERS Safety Report 5813393-5 (Version None)
Quarter: 2008Q3

REPORT INFORMATION
  Report Type: 
  Country: None (occurrence: None)
  Receive Date: 20080717
  Receipt Date: 20080714
  Transmission Date: 20090109
  Serious: Yes (Disabling)
  Sender: FDA-Public Use
  Company Number: US-ROCHE-567745

PATIENT
  Sex: Male

DRUGS (18)
  1. ACCUTANE [Suspect]
     Indication: ACNE
     Dosage: FIRST COURSE
     Route: 065
     Dates: start: 19871001, end: 19880101
  2. ACCUTANE [Suspect]
     Dosage: SECOND COURSE
     Route: 065
     Dates: start: 19890501, end: 19891001
  3. ACCUTANE [Suspect]
     Dosage: THIRD COURSE: DECREASED IT TO TWICE A WEEK, THEN ONE A WEEK
     Route: 065
     Dates: start: 19911101, end: 19920401
  4. ACCUTANE [Suspect]
     Dosage: FOURTH COURSE
     Route: 065
     Dates: start: 19930301, end: 19930501
  5. ACCUTANE [Suspect]
     Dosage: 40 MG ON ODD DAYS AND 80 MG ON EVEN DAYS
     Route: 065
     Dates: start: 19940201, end: 19940301
  6. E-MYCIN [Concomitant]
  7. RETIN-A [Concomitant]
  8. E.E.S. [Concomitant]
  9. CLEOCIN T [Concomitant]
  10. AMOXICILLIN [Concomitant]
  11. BENZOYL PEROXIDE [Concomitant]
  12. BENZOYL PEROXIDE [Concomitant]
     Dosage: PERSAGEL
  13. BACTRIM DS [Concomitant]
  14. MINOCYCLINE HYDROCHLORIDE [Concomitant]
  15. DIFFERIN [Concomitant]
  16. POLYMYXIN/NEOMYCIN/BACITRACIN [Concomitant]
     Dosage: SEPTA
  17. DOXYCYCLINE HCL [Concomitant]
  18. VITAMIN A [Concomitant]

REACTIONS (15)
  - ASPARTATE AMINOTRANSFERASE INCREASED [None]
  - BLOOD TESTOSTERONE DECREASED [None]
  - DISTURBANCE IN SEXUAL AROUSAL [None]
  - DRY SKIN [None]
  - ERECTILE DYSFUNCTION [None]
  - ERYTHEMA [None]
  - INTERTRIGO [None]
  - LIP DRY [None]
  - LOSS OF LIBIDO [None]
  - NERVE INJURY [None]
  - NEURODERMATITIS [None]
  - PSORIASIS [None]
  - RASH PRURITIC [None]
  - SEBORRHOEA [None]
  - SEMEN VOLUME DECREASED [None]
